FAERS Safety Report 16158339 (Version 1)
Quarter: 2019Q2

REPORT INFORMATION
  Report Type: Spontaneous
  Country: US (occurrence: US)
  Receive Date: 20190404
  Receipt Date: 20190404
  Transmission Date: 20190711
  Serious: No
  Sender: FDA-Public Use
  Company Number: US-AMGEN-USASP2019049743

PATIENT
  Age: 90 Year
  Sex: Female

DRUGS (3)
  1. VITAMINE D [Concomitant]
     Active Substance: CHOLECALCIFEROL
     Dosage: UNK
  2. PROLIA [Suspect]
     Active Substance: DENOSUMAB
     Indication: OSTEOPOROSIS POSTMENOPAUSAL
     Dosage: UNK
     Route: 065
     Dates: start: 20171120
  3. CALCIUM [Concomitant]
     Active Substance: CALCIUM
     Dosage: UNK

REACTIONS (13)
  - Burning sensation [Unknown]
  - Arthralgia [Recovered/Resolved]
  - Exostosis [Unknown]
  - Tongue blistering [Unknown]
  - Blister [Unknown]
  - Oral mucosal eruption [Not Recovered/Not Resolved]
  - Lip dry [Unknown]
  - Rash papular [Not Recovered/Not Resolved]
  - Lip swelling [Unknown]
  - Facial asymmetry [Unknown]
  - Rash pruritic [Not Recovered/Not Resolved]
  - Oral mucosal blistering [Unknown]
  - Muscular weakness [Unknown]
